FAERS Safety Report 11779249 (Version 1)
Quarter: 2015Q4

REPORT INFORMATION
  Report Type: Spontaneous
  Country: US (occurrence: US)
  Receive Date: 20151125
  Receipt Date: 20151125
  Transmission Date: 20160304
  Serious: No
  Sender: FDA-Public Use
  Company Number: US-PFIZER INC-2015401281

PATIENT
  Age: 41 Year
  Sex: Female

DRUGS (3)
  1. PRISTIQ EXTENDED RELEASE [Suspect]
     Active Substance: DESVENLAFAXINE SUCCINATE
     Dosage: 50 MG, ONCE A DAY
     Route: 048
     Dates: start: 2015
  2. PRISTIQ EXTENDED RELEASE [Suspect]
     Active Substance: DESVENLAFAXINE SUCCINATE
     Indication: DEPRESSION
     Dosage: 50 MG, ONCE A DAY
     Route: 048
     Dates: start: 2003, end: 2015
  3. SEROQUEL [Concomitant]
     Active Substance: QUETIAPINE FUMARATE
     Indication: DEPRESSION
     Dosage: 25 MG, 1X/DAY

REACTIONS (4)
  - Chills [Unknown]
  - Headache [Unknown]
  - Nausea [Unknown]
  - Feeling abnormal [Unknown]
